FAERS Safety Report 21744543 (Version 1)
Quarter: 2022Q4

REPORT INFORMATION
  Report Type: Report from Study
  Country: HU (occurrence: HU)
  Receive Date: 20221218
  Receipt Date: 20221218
  Transmission Date: 20230113
  Serious: Yes (Hospitalization)
  Sender: FDA-Public Use
  Company Number: HU-ABBVIE-4240636

PATIENT
  Sex: Male

DRUGS (6)
  1. CARBIDOPA\LEVODOPA [Suspect]
     Active Substance: CARBIDOPA\LEVODOPA
     Indication: Parkinson^s disease
     Dosage: MORNING DOSE: 9.0 ML; CONTINUOUS DOSE: 3.7 ML/HOURS; EXTRA DOSE: 1.0 ML
     Route: 050
     Dates: start: 20170621
  2. CARBIDOPA\LEVODOPA [Suspect]
     Active Substance: CARBIDOPA\LEVODOPA
  3. ALPRAZOLAMS [Concomitant]
     Indication: Product used for unknown indication
     Dosage: 0.5 MILLIGRAM
     Route: 048
  4. esomaprazol [Concomitant]
     Indication: Prophylaxis
     Dosage: 40 MILLIGRAM
     Route: 048
  5. LEUPROLIDE ACETATE [Concomitant]
     Active Substance: LEUPROLIDE ACETATE
     Indication: Prostate cancer
     Dosage: 22.5 MICROGRAM 3 MONTHLY
     Route: 030
  6. TELMISARTANA [Concomitant]
     Indication: Hypertension
     Dosage: 40 MILLIGRAM
     Route: 048

REACTIONS (2)
  - Respiratory disorder [Not Recovered/Not Resolved]
  - COVID-19 [Not Recovered/Not Resolved]

NARRATIVE: CASE EVENT DATE: 20221209
